FAERS Safety Report 5898319-0 (Version None)
Quarter: 2008Q3

REPORT INFORMATION
  Report Type: 
  Country: None (occurrence: None)
  Receive Date: 20080925
  Receipt Date: 20070912
  Transmission Date: 20090109
  Serious: No
  Sender: FDA-Public Use
  Company Number: A0681459A

PATIENT
  Age: 51 Year
  Sex: Male

DRUGS (6)
  1. WELLBUTRIN XL [Suspect]
     Indication: DEPRESSION
     Route: 048
  2. PAXIL CR [Suspect]
     Indication: DEPRESSION
     Dosage: 12.5MG PER DAY
     Route: 048
     Dates: start: 20070501
  3. DIOVAN [Concomitant]
  4. LIPITOR [Concomitant]
  5. PREVACID [Concomitant]
  6. BISOPROLOL FUMARATE [Concomitant]

REACTIONS (4)
  - EJACULATION DISORDER [None]
  - ERECTILE DYSFUNCTION [None]
  - GASTRIC DISORDER [None]
  - LIBIDO DECREASED [None]
